FAERS Safety Report 14574666 (Version 1)
Quarter: 2018Q1

REPORT INFORMATION
  Report Type: Spontaneous
  Country: US (occurrence: US)
  Receive Date: 20180227
  Receipt Date: 20180227
  Transmission Date: 20180509
  Serious: No
  Sender: FDA-Public Use
  Company Number: US-ROCHE-1970696

PATIENT
  Sex: Female

DRUGS (18)
  1. ATENOLOL. [Concomitant]
     Active Substance: ATENOLOL
     Route: 065
  2. CLOPIDOGREL [Concomitant]
     Active Substance: CLOPIDOGREL BISULFATE
     Route: 065
  3. PREDNISONE. [Concomitant]
     Active Substance: PREDNISONE
     Route: 065
  4. ATORVASTATIN [Concomitant]
     Active Substance: ATORVASTATIN
     Route: 065
  5. METOCARBAMOL [Concomitant]
     Active Substance: METHOCARBAMOL
     Route: 065
  6. SYMBICORT [Concomitant]
     Active Substance: BUDESONIDE\FORMOTEROL FUMARATE DIHYDRATE
     Dosage: 160-4.5 UNIT NOT REPORTED
     Route: 065
  7. XOLAIR [Suspect]
     Active Substance: OMALIZUMAB
     Indication: SEASONAL ALLERGY
     Dosage: 150 MG VIAL
     Route: 058
     Dates: start: 20170519, end: 201706
  8. HYDROCODONE BITARTRATE AND ACETAMINOPHEN [Concomitant]
     Active Substance: ACETAMINOPHEN\HYDROCODONE BITARTRATE
     Dosage: 10-325 MG
     Route: 065
  9. LEVOTHYROXIN [Concomitant]
     Active Substance: LEVOTHYROXINE
     Route: 065
  10. TEMAZEPAM. [Concomitant]
     Active Substance: TEMAZEPAM
     Route: 065
  11. TUDORZA PRESSAIR [Concomitant]
     Active Substance: ACLIDINIUM BROMIDE
     Dosage: 400/ACT
     Route: 065
  12. ZAFIRLUKAST. [Concomitant]
     Active Substance: ZAFIRLUKAST
     Route: 065
  13. PANTOPRAZOLE [Concomitant]
     Active Substance: PANTOPRAZOLE
     Route: 065
  14. VENLAFAXINE [Concomitant]
     Active Substance: VENLAFAXINE HYDROCHLORIDE
     Route: 065
  15. LOSARTAN/HCTZ [Concomitant]
     Active Substance: HYDROCHLOROTHIAZIDE\LOSARTAN
     Dosage: 100-12.5
     Route: 065
  16. MOMETASONE [Concomitant]
     Active Substance: MOMETASONE
     Route: 065
  17. TOBRAMYCIN. [Concomitant]
     Active Substance: TOBRAMYCIN
     Dosage: 1.2/30 ML
     Route: 065
  18. AMOXICILLIN/CLAVULANATE POTASSIUM [Concomitant]
     Active Substance: AMOXICILLIN\CLAVULANATE POTASSIUM
     Dosage: 875-125
     Route: 065

REACTIONS (2)
  - Drug ineffective [Unknown]
  - No adverse event [Unknown]
